FAERS Safety Report 5761898-8 (Version None)
Quarter: 2008Q2

REPORT INFORMATION
  Report Type: 
  Country: None (occurrence: None)
  Receive Date: 20080606
  Receipt Date: 20080526
  Transmission Date: 20081010
  Serious: Yes (Hospitalization)
  Sender: FDA-Public Use
  Company Number: JP-PFIZER INC-2008044487

PATIENT
  Sex: Male
  Weight: 60 kg

DRUGS (9)
  1. CP-690,550 [Suspect]
     Indication: RHEUMATOID ARTHRITIS
     Route: 048
     Dates: start: 20080317, end: 20080525
  2. AZULENE SULFONATE SODIUM/L-GLUTAMINE [Concomitant]
     Route: 048
  3. MISOPROSTOL [Concomitant]
     Route: 048
  4. WARFARIN SODIUM [Concomitant]
     Indication: MYOCARDIAL INFARCTION
     Route: 048
  5. DICLOFENAC SODIUM [Concomitant]
     Route: 048
  6. DICLOFENAC SODIUM [Concomitant]
  7. PREDNISOLONE [Concomitant]
     Route: 048
  8. METHOTREXATE [Concomitant]
     Route: 048
  9. FOLIC ACID [Concomitant]
     Route: 048

REACTIONS (1)
  - CARDIAC FAILURE [None]
